FAERS Safety Report 6736139-5 (Version None)
Quarter: 2010Q2

REPORT INFORMATION
  Report Type: 
  Country: None (occurrence: None)
  Receive Date: 20100521
  Receipt Date: 20100511
  Transmission Date: 20101027
  Serious: Yes (Other)
  Sender: FDA-Public Use
  Company Number: US-CELGENEUS-163-21880-10042640

PATIENT
  Sex: Male

DRUGS (2)
  1. REVLIMID [Suspect]
     Indication: MULTIPLE MYELOMA
     Route: 048
     Dates: start: 20090910, end: 20100111
  2. REVLIMID [Suspect]
     Route: 048
     Dates: start: 20070901

REACTIONS (3)
  - ATRIOVENTRICULAR BLOCK [None]
  - FALL [None]
  - JOINT INJURY [None]
